FAERS Safety Report 7743220-0 (Version None)
Quarter: 2011Q3

REPORT INFORMATION
  Report Type: 
  Country: None (occurrence: None)
  Receive Date: 20110902
  Receipt Date: 20110818
  Transmission Date: 20111222
  Serious: Yes (Other)
  Sender: FDA-Public Use
  Company Number: DSA_47038_2011

PATIENT
  Sex: Female

DRUGS (31)
  1. DOXORUBICIN HCL [Concomitant]
  2. ETOPOSIDE [Concomitant]
  3. ACETAMINOPHEN [Concomitant]
  4. ALBUTEROL [Concomitant]
  5. NEUPOGEN [Concomitant]
  6. ELIDEL [Suspect]
     Indication: DERMATITIS
     Dosage: 30 G QD TOPICAL
     Route: 061
     Dates: start: 20020901
  7. ZOFRAN [Concomitant]
  8. BACTRIM [Concomitant]
  9. CYCLOPHOSOPHAMIDE [Concomitant]
  10. PROMETHAZINE [Concomitant]
  11. PREDNISONE [Concomitant]
  12. ONDANSETRON [Concomitant]
  13. LEVOTHYROXINE SODIUM [Concomitant]
  14. BLEOMYCIN SULFATE [Concomitant]
  15. DIPHENHYDRAMINE HCL [Concomitant]
  16. TAGAMET [Concomitant]
  17. FLONASE [Concomitant]
  18. MOTRIN [Concomitant]
  19. AMOXICILLIN [Concomitant]
  20. FILGRASTIM [Concomitant]
  21. FENTANYL [Concomitant]
  22. LORAZEPAM [Concomitant]
  23. ZANTAC [Concomitant]
  24. PHENERGAN HCL [Concomitant]
  25. BENADRYL ACHE [Concomitant]
  26. VINCRISTINE [Concomitant]
  27. SYNTHROID [Concomitant]
  28. CLARITIN [Concomitant]
  29. NYSTATIN [Concomitant]
  30. OXYCODONE HCL [Concomitant]
  31. GARDASIL [Concomitant]

REACTIONS (21)
  - NAUSEA [None]
  - DECREASED APPETITE [None]
  - PHOTOPHOBIA [None]
  - ASTHENIA [None]
  - MYCOPLASMA INFECTION [None]
  - PHARYNGITIS [None]
  - VIRAL INFECTION [None]
  - NASAL CONGESTION [None]
  - HODGKIN'S DISEASE [None]
  - EAR INFECTION [None]
  - THROAT IRRITATION [None]
  - DIZZINESS [None]
  - CONSTIPATION [None]
  - HILAR LYMPHADENOPATHY [None]
  - HYPOTHYROIDISM [None]
  - OSTEOCHONDRITIS [None]
  - DIARRHOEA [None]
  - HODGKIN'S DISEASE NODULAR SCLEROSIS STAGE IV [None]
  - VOMITING [None]
  - TENSION HEADACHE [None]
  - MYELOPROLIFERATIVE DISORDER [None]
